FAERS Safety Report 9049797 (Version 1)
Quarter: 2013Q1

REPORT INFORMATION
  Report Type: Spontaneous
  Country: US (occurrence: US)
  Receive Date: 20130205
  Receipt Date: 20130205
  Transmission Date: 20140127
  Serious: Yes (Hospitalization, Congenital Anomaly, Other)
  Sender: FDA-Public Use
  Company Number: US-PFIZER INC-2013043995

PATIENT
  Sex: Male

DRUGS (1)
  1. ZOLOFT [Suspect]
     Indication: DEPRESSION
     Dosage: UNK
     Route: 064
     Dates: start: 200401

REACTIONS (16)
  - Maternal exposure timing unspecified [Unknown]
  - Arnold-Chiari malformation [Not Recovered/Not Resolved]
  - Patent ductus arteriosus [Recovered/Resolved]
  - Bronchopulmonary dysplasia [Unknown]
  - Neonatal respiratory distress syndrome [Unknown]
  - Neonatal respiratory failure [Unknown]
  - Intraventricular haemorrhage neonatal [Unknown]
  - Anaemia neonatal [Unknown]
  - Macrocephaly [Unknown]
  - Hypoxia [Not Recovered/Not Resolved]
  - Autism [Unknown]
  - Premature baby [Unknown]
  - Asthma [Not Recovered/Not Resolved]
  - Bronchitis [Not Recovered/Not Resolved]
  - Developmental delay [Unknown]
  - Hypotonia [Unknown]
